FAERS Safety Report 12174050 (Version 1)
Quarter: 2016Q1

REPORT INFORMATION
  Report Type: Spontaneous
  Country: US (occurrence: None)
  Receive Date: 20160311
  Receipt Date: 20160311
  Transmission Date: 20160526
  Serious: Yes (Disabling)
  Sender: FDA-Public Use
  Company Number: None

PATIENT
  Age: 59 Year
  Sex: Male
  Weight: 113.4 kg

DRUGS (1)
  1. DILTIAZEM 240MG SUN [Suspect]
     Active Substance: DILTIAZEM
     Indication: BLOOD PRESSURE MEASUREMENT
     Dosage: 1
     Route: 048
     Dates: start: 20160127, end: 20160128

REACTIONS (3)
  - Headache [None]
  - Sinus disorder [None]
  - Tinnitus [None]

NARRATIVE: CASE EVENT DATE: 20160127
